FAERS Safety Report 6722279-3 (Version None)
Quarter: 2010Q2

REPORT INFORMATION
  Report Type: 
  Country: None (occurrence: None)
  Receive Date: 20100512
  Receipt Date: 20100503
  Transmission Date: 20101027
  Serious: Yes (Other)
  Sender: FDA-Public Use
  Company Number: US-SANOFI-AVENTIS-2010SA026515

PATIENT
  Age: 88 Year
  Sex: Female

DRUGS (3)
  1. LANTUS [Suspect]
     Indication: TYPE 2 DIABETES MELLITUS
     Dosage: DOSE:25 UNIT(S)
     Route: 058
  2. SOLOSTAR [Suspect]
     Indication: TYPE 2 DIABETES MELLITUS
  3. NOVOLOG [Concomitant]
     Dosage: 3 INJECTIONS PER DAY WITH MEALS ( CONROL NUMBER X862561 EXP DATGE 5/201)

REACTIONS (3)
  - ANEURYSM [None]
  - HYPERGLYCAEMIA [None]
  - INJECTION SITE REACTION [None]
